FAERS Safety Report 4890530-0 (Version None)
Quarter: 2006Q1

REPORT INFORMATION
  Report Type: 
  Country: None (occurrence: None)
  Receive Date: 20060123
  Receipt Date: 20060112
  Transmission Date: 20060701
  Serious: Yes (Hospitalization, Other)
  Sender: FDA-Public Use
  Company Number: US200601001971

PATIENT
  Age: 37 Year
  Sex: Male

DRUGS (3)
  1. HUMALOG [Suspect]
     Indication: DIABETES MELLITUS
     Dosage: 18 U,DAILY (1/D)
  2. HUMALOG [Suspect]
  3. HUMULIN N [Suspect]
     Indication: DIABETES MELLITUS
     Dosage: 39 U, DAILY (1/D)
     Dates: start: 19720101

REACTIONS (12)
  - BLINDNESS UNILATERAL [None]
  - BLOOD GLUCOSE INCREASED [None]
  - BONE GRAFT [None]
  - DEVICE RELATED INFECTION [None]
  - DIABETIC RETINOPATHY [None]
  - DRUG INEFFECTIVE [None]
  - FOOT FRACTURE [None]
  - LOCALISED INFECTION [None]
  - NEUROPATHIC ARTHROPATHY [None]
  - PHARMACEUTICAL PRODUCT COMPLAINT [None]
  - POOR QUALITY DRUG ADMINISTERED [None]
  - POSTOPERATIVE INFECTION [None]
